FAERS Safety Report 5330435-4 (Version None)
Quarter: 2007Q2

REPORT INFORMATION
  Report Type: 
  Country: None (occurrence: None)
  Receive Date: 20070515
  Receipt Date: 20070508
  Transmission Date: 20071010
  Serious: Yes (Life-Threatening, Hospitalization)
  Sender: FDA-Public Use
  Company Number: 340001M07FRA

PATIENT
  Age: 28 Year
  Sex: Female
  Weight: 50 kg

DRUGS (3)
  1. OVIDREL [Suspect]
     Indication: IN VITRO FERTILISATION
     Dosage: ONCE, SUBCUTANEOUS
     Route: 058
     Dates: start: 20061019, end: 20061019
  2. PUREGON (FOLLITROPIN BETA) [Suspect]
     Indication: IN VITRO FERTILISATION
     Dosage: 150 IU
     Dates: start: 20061009, end: 20061018
  3. GONADORELIN INJ [Suspect]
     Indication: IN VITRO FERTILISATION
     Dosage: SUBCUTANEOUS
     Route: 058
     Dates: start: 20060923, end: 20061018

REACTIONS (14)
  - ABDOMINAL PAIN [None]
  - ABDOMINAL REBOUND TENDERNESS [None]
  - ASCITES [None]
  - CACHEXIA [None]
  - CULTURE POSITIVE [None]
  - ESCHERICHIA INFECTION [None]
  - HYPERTHERMIA [None]
  - INFLAMMATION [None]
  - OVARIAN HYPERSTIMULATION SYNDROME [None]
  - PALLOR [None]
  - PELVIC HAEMATOMA [None]
  - PERITONITIS [None]
  - PLEURAL EFFUSION [None]
  - RESPIRATORY DISTRESS [None]
